FAERS Safety Report 7919237-X (Version None)
Quarter: 2011Q4

REPORT INFORMATION
  Report Type: 
  Country: None (occurrence: None)
  Receive Date: 20111114
  Receipt Date: 20111104
  Transmission Date: 20120403
  Serious: Yes (Hospitalization)
  Sender: FDA-Public Use
  Company Number: 2009JP005825

PATIENT
  Age: 35 Year
  Sex: Female

DRUGS (14)
  1. BLOSTAR M (FAMOTIDINE) [Concomitant]
  2. PERSANTIN [Concomitant]
  3. PL GRAN. (CAFFEINE, PARACETAMOL, PROMEHAZINE METHYLENE DISALICYLATE, S [Concomitant]
  4. TOYOFAROL (ALFACALCIDOL) [Concomitant]
  5. SOLANTAL (TIARAMIDE HYDROCHLORIDE) [Concomitant]
  6. PREDNISOLONE [Concomitant]
  7. PROCYLIN (BERAPROST SODIUM) [Concomitant]
  8. FERROMIA (FERROUS SODIUM CITRATE) [Concomitant]
  9. METHYCOBAL (MECOBALAMIN) [Concomitant]
  10. WARFARIN SODIUM [Concomitant]
  11. PREDONINE (PREDNISOLONE SODIUM SUCCINATE) [Concomitant]
  12. ACETAMINOPHEN [Concomitant]
  13. SELBEX (TEPRENONE) [Concomitant]
  14. TACROLIMUS [Suspect]
     Indication: LUPUS NEPHRITIS
     Dosage: 3 MG, /D, ORAL
     Route: 048
     Dates: start: 20080501

REACTIONS (2)
  - NASOPHARYNGITIS [None]
  - HENOCH-SCHONLEIN PURPURA [None]
